FAERS Safety Report 12964915 (Version 3)
Quarter: 2016Q4

REPORT INFORMATION
  Report Type: Spontaneous
  Country: US (occurrence: US)
  Receive Date: 20161122
  Receipt Date: 20161222
  Transmission Date: 20170207
  Serious: Yes (Hospitalization, Other)
  Sender: FDA-Public Use
  Company Number: US-PFIZER INC-2016537247

PATIENT
  Age: 52 Year
  Sex: Male
  Weight: 99.79 kg

DRUGS (5)
  1. ALPRAZOLAM. [Suspect]
     Active Substance: ALPRAZOLAM
     Indication: NERVE INJURY
     Dosage: 2 MG, DAILY
     Route: 048
  2. LITHIUM. [Suspect]
     Active Substance: LITHIUM
     Indication: BIPOLAR DISORDER
     Dosage: 300 MG, 2X/DAY
     Route: 048
     Dates: start: 1998
  3. ALPRAZOLAM. [Suspect]
     Active Substance: ALPRAZOLAM
     Dosage: 6 MG, DAILY (2 MG IN THE MORNING AND 4 MG AT NIGHT)
     Route: 048
  4. SEROQUEL [Suspect]
     Active Substance: QUETIAPINE FUMARATE
     Indication: PSYCHOTIC DISORDER
     Dosage: 600 MG, 1X/DAY (TWO TABLETS AT NIGHT)
     Route: 048
  5. CHANTIX [Suspect]
     Active Substance: VARENICLINE TARTRATE
     Indication: SMOKING CESSATION THERAPY
     Dosage: 1 DF, DAILY
     Route: 048

REACTIONS (19)
  - Abnormal behaviour [Unknown]
  - Hallucination [Unknown]
  - Nightmare [Unknown]
  - Schizoid personality disorder [Recovering/Resolving]
  - Suicidal ideation [Unknown]
  - Mental disorder [Unknown]
  - Seizure [Unknown]
  - Condition aggravated [Unknown]
  - Delusion [Not Recovered/Not Resolved]
  - Disturbance in attention [Unknown]
  - Psychotic disorder [Unknown]
  - Bipolar disorder [Unknown]
  - Pain [Not Recovered/Not Resolved]
  - Intentional self-injury [Unknown]
  - Haemorrhage [Unknown]
  - Weight increased [Unknown]
  - Tongue biting [Unknown]
  - Weight decreased [Unknown]
  - Agoraphobia [Recovering/Resolving]
